FAERS Safety Report 7531372-7 (Version None)
Quarter: 2011Q2

REPORT INFORMATION
  Report Type: 
  Country: None (occurrence: None)
  Receive Date: 20110608
  Receipt Date: 20110525
  Transmission Date: 20111010
  Serious: Yes (Other)
  Sender: FDA-Public Use
  Company Number: PHHY2011CA46065

PATIENT
  Sex: Female

DRUGS (1)
  1. ZOLEDRONIC ACID [Suspect]
     Indication: OSTEOPOROSIS
     Dates: start: 20100816

REACTIONS (5)
  - MYALGIA [None]
  - JOINT INJURY [None]
  - HEAD INJURY [None]
  - FALL [None]
  - CONTUSION [None]
